FAERS Safety Report 9642990 (Version 2)
Quarter: 2013Q4

REPORT INFORMATION
  Report Type: Spontaneous
  Country: AU (occurrence: AU)
  Receive Date: 20131024
  Receipt Date: 20131108
  Transmission Date: 20140711
  Serious: Yes (Death, Hospitalization, Other)
  Sender: FDA-Public Use
  Company Number: AU-RANBAXY-2013RR-74555

PATIENT
  Age: 62 Year
  Sex: Female

DRUGS (4)
  1. ATORVASTATIN [Suspect]
     Indication: DYSLIPIDAEMIA
     Dosage: 20 MG/DAY
     Route: 048
  2. SIMVASTATIN AND EZETIMIBE [Interacting]
     Indication: DYSLIPIDAEMIA
     Dosage: 20/10 MG/DAY
     Route: 048
  3. VERAPAMIL [Interacting]
     Indication: PRODUCT USED FOR UNKNOWN INDICATION
     Dosage: UNK
     Route: 065
  4. FLUOXETINE [Interacting]
     Indication: PRODUCT USED FOR UNKNOWN INDICATION
     Dosage: 40 MG/DAY
     Route: 065

REACTIONS (4)
  - Myositis [Fatal]
  - Quadriparesis [Unknown]
  - Respiratory failure [Fatal]
  - Drug interaction [Unknown]
